FAERS Safety Report 16854057 (Version 4)
Quarter: 2019Q4

REPORT INFORMATION
  Report Type: Report from Study
  Country: US (occurrence: US)
  Receive Date: 20190926
  Receipt Date: 20191118
  Transmission Date: 20200122
  Serious: Yes (Hospitalization, Other)
  Sender: FDA-Public Use
  Company Number: US-ROCHE-2412000

PATIENT
  Age: 58 Year
  Sex: Female
  Weight: 77.18 kg

DRUGS (22)
  1. ZINC. [Concomitant]
     Active Substance: ZINC
  2. IRON [Concomitant]
     Active Substance: IRON
  3. PRILOSEC [Concomitant]
     Active Substance: OMEPRAZOLE MAGNESIUM
     Route: 065
  4. DIAZEPAM. [Concomitant]
     Active Substance: DIAZEPAM
     Route: 065
  5. CYCLOBENZAPRINE. [Concomitant]
     Active Substance: CYCLOBENZAPRINE
     Route: 065
  6. BENADRYL [Concomitant]
     Active Substance: DIPHENHYDRAMINE HYDROCHLORIDE
     Route: 042
  7. OCREVUS [Suspect]
     Active Substance: OCRELIZUMAB
     Indication: RELAPSING MULTIPLE SCLEROSIS
     Dosage: SUBSEQUENT DOSE ON: 12/APR/2019
     Route: 042
     Dates: start: 20190328
  8. ESOMEPRAZOLE. [Concomitant]
     Active Substance: ESOMEPRAZOLE MAGNESIUM
     Route: 065
  9. AMBIEN [Concomitant]
     Active Substance: ZOLPIDEM TARTRATE
  10. FLEXERIL [Concomitant]
     Active Substance: CYCLOBENZAPRINE HYDROCHLORIDE
  11. TRIAMTERENE. [Concomitant]
     Active Substance: TRIAMTERENE
  12. WELLBUTRIN [Concomitant]
     Active Substance: BUPROPION HYDROCHLORIDE
  13. GABAPENTIN. [Concomitant]
     Active Substance: GABAPENTIN
     Route: 065
  14. ZOLPIDEM [Concomitant]
     Active Substance: ZOLPIDEM TARTRATE
     Route: 065
  15. VITAMIN C [Concomitant]
     Active Substance: ASCORBIC ACID
  16. OCREVUS [Suspect]
     Active Substance: OCRELIZUMAB
     Route: 042
     Dates: start: 201904
  17. TYLENOL [Concomitant]
     Active Substance: ACETAMINOPHEN
     Indication: PYREXIA
     Route: 065
  18. SOLU-MEDROL [Concomitant]
     Active Substance: METHYLPREDNISOLONE SODIUM SUCCINATE
     Route: 042
  19. OCREVUS [Suspect]
     Active Substance: OCRELIZUMAB
     Route: 042
  20. ADDERALL [Concomitant]
     Active Substance: AMPHETAMINE ASPARTATE\AMPHETAMINE SULFATE\DEXTROAMPHETAMINE SACCHARATE\DEXTROAMPHETAMINE SULFATE
     Route: 065
  21. BUPROPION. [Concomitant]
     Active Substance: BUPROPION
     Route: 065
  22. IBUPROFEN. [Concomitant]
     Active Substance: IBUPROFEN
     Route: 065

REACTIONS (25)
  - Dizziness [Recovered/Resolved]
  - Nausea [Recovered/Resolved]
  - Muscular weakness [Recovered/Resolved]
  - Haemoglobin decreased [Recovered/Resolved]
  - Hallucination [Recovered/Resolved]
  - Feeling abnormal [Not Recovered/Not Resolved]
  - Pneumonia [Recovered/Resolved]
  - Joint swelling [Not Recovered/Not Resolved]
  - Stress [Unknown]
  - Decreased appetite [Recovered/Resolved]
  - Paraesthesia [Not Recovered/Not Resolved]
  - Alopecia [Not Recovered/Not Resolved]
  - Asthenia [Not Recovered/Not Resolved]
  - Fear [Unknown]
  - Fall [Unknown]
  - Syncope [Recovered/Resolved]
  - Balance disorder [Not Recovered/Not Resolved]
  - Blood potassium decreased [Recovered/Resolved]
  - Rhinorrhoea [Recovered/Resolved]
  - Amnesia [Not Recovered/Not Resolved]
  - Pain [Recovered/Resolved]
  - Fatigue [Unknown]
  - Pneumonia [Recovered/Resolved]
  - Peripheral swelling [Not Recovered/Not Resolved]
  - Weight decreased [Recovered/Resolved]

NARRATIVE: CASE EVENT DATE: 20190328
